FAERS Safety Report 9215260 (Version 1)
Quarter: 2013Q2

REPORT INFORMATION
  Report Type: Spontaneous
  Country: US (occurrence: US)
  Receive Date: 20130405
  Receipt Date: 20130405
  Transmission Date: 20140414
  Serious: No
  Sender: FDA-Public Use
  Company Number: US-ASTRAZENECA-2013SE13326

PATIENT
  Sex: Male

DRUGS (2)
  1. NEXIUM [Suspect]
     Route: 048
  2. PRILOSEC [Suspect]
     Route: 048

REACTIONS (7)
  - Therapeutic response unexpected [Unknown]
  - Gastrooesophageal reflux disease [Unknown]
  - Aphagia [Unknown]
  - Dyspnoea [Unknown]
  - Lung disorder [Unknown]
  - Intentional drug misuse [Unknown]
  - Drug dose omission [Unknown]
